FAERS Safety Report 9298822 (Version 3)
Quarter: 2013Q4

REPORT INFORMATION
  Report Type: Spontaneous
  Country: FR (occurrence: None)
  Receive Date: 20130515
  Receipt Date: 20131224
  Transmission Date: 20140711
  Serious: Yes (Hospitalization)
  Sender: FDA-Public Use
  Company Number: 2013FR001569

PATIENT
  Age: 79 Year
  Sex: Male
  Weight: 78 kg

DRUGS (7)
  1. PONATINIB [Suspect]
     Indication: CHRONIC MYELOID LEUKAEMIA
     Route: 048
     Dates: start: 20110629, end: 20130418
  2. PLAVIX [Concomitant]
  3. KARDEGIC [Concomitant]
  4. CRESTOR [Concomitant]
  5. SELOKEN [Concomitant]
  6. EUPANTOL [Concomitant]
  7. COVERAM [Concomitant]

REACTIONS (10)
  - Chest pain [None]
  - Abdominal discomfort [None]
  - Haemoglobin decreased [None]
  - C-reactive protein increased [None]
  - Bundle branch block right [None]
  - Hepatic steatosis [None]
  - Cholelithiasis [None]
  - Acquired diaphragmatic eventration [None]
  - Angina pectoris [None]
  - Coronary artery restenosis [None]
